FAERS Safety Report 8099835-6 (Version None)
Quarter: 2012Q1

REPORT INFORMATION
  Report Type: 
  Country: None (occurrence: None)
  Receive Date: 20120129
  Receipt Date: 20111009
  Transmission Date: 20120608
  Serious: No
  Sender: FDA-Public Use
  Company Number: US-ABBOTT-11P-163-0862634-00

PATIENT
  Age: 31 Year
  Sex: Female

DRUGS (2)
  1. HUMIRA [Suspect]
     Indication: PSORIASIS
     Dates: start: 20100101
  2. ORTHO CYCLEN-28 [Concomitant]
     Indication: PRODUCT USED FOR UNKNOWN INDICATION
     Dosage: STARTED PRIOR TO HUMIRA

REACTIONS (2)
  - SINUSITIS [None]
  - UPPER RESPIRATORY TRACT INFECTION [None]
